FAERS Safety Report 6465035-6 (Version None)
Quarter: 2009Q4

REPORT INFORMATION
  Report Type: 
  Country: None (occurrence: None)
  Receive Date: 20091124
  Receipt Date: 20091117
  Transmission Date: 20100525
  Serious: Yes (Hospitalization, Other)
  Sender: FDA-Public Use
  Company Number: 09CH001218

PATIENT
  Age: 55 Year
  Sex: Female

DRUGS (9)
  1. LITHIUM CARBONATE [Suspect]
     Indication: DEPRESSION
     Dosage: 900 MG, QD
  2. SERTRALINE HCL [Concomitant]
  3. ARIPIPRAZOLE [Concomitant]
  4. QUETIAPINE [Concomitant]
  5. LORAZEPAM [Concomitant]
  6. MAGNESIUM [Concomitant]
  7. LEVOTHYROXINE SODIUM [Concomitant]
  8. OLANZAPINE [Concomitant]
  9. PRAVASTATIN [Concomitant]

REACTIONS (8)
  - DEPRESSION [None]
  - DRUG INEFFECTIVE [None]
  - EYE PRURITUS [None]
  - HALLUCINATION, AUDITORY [None]
  - HYPERSENSITIVITY [None]
  - REFUSAL OF TREATMENT BY PATIENT [None]
  - SUICIDE ATTEMPT [None]
  - TREATMENT NONCOMPLIANCE [None]
